FAERS Safety Report 13418238 (Version 4)
Quarter: 2017Q2

REPORT INFORMATION
  Report Type: Spontaneous
  Country: US (occurrence: US)
  Receive Date: 20170407
  Receipt Date: 20170616
  Transmission Date: 20170830
  Serious: Yes (Other)
  Sender: FDA-Public Use
  Company Number: US-PRINSTON PHARMACEUTICAL INC.-2016PRN00134

PATIENT
  Age: 57 Year
  Sex: Male
  Weight: 113.38 kg

DRUGS (11)
  1. BENAZEPRIL HYDROCHLORIDE. [Suspect]
     Active Substance: BENAZEPRIL HYDROCHLORIDE
     Dosage: 20 MG, 2X/DAY
  2. CARBAMAZEPINE. [Concomitant]
     Active Substance: CARBAMAZEPINE
     Dosage: 600 MG, 1X/DAY IN THE PM
  3. SERTALINE [Concomitant]
     Active Substance: SERTRALINE HYDROCHLORIDE
     Indication: BIPOLAR DISORDER
     Dosage: 150 MG, 1X/DAY
  4. BENAZEPRIL HYDROCHLORIDE. [Suspect]
     Active Substance: BENAZEPRIL HYDROCHLORIDE
     Indication: HYPERTENSION
     Dosage: 1 TABLETS, ONCE
     Route: 048
     Dates: start: 20160615, end: 20160615
  5. AMLODIPINE [Concomitant]
     Active Substance: AMLODIPINE BESYLATE
  6. PANTOPRAZOLE [Concomitant]
     Active Substance: PANTOPRAZOLE
     Indication: GASTROOESOPHAGEAL REFLUX DISEASE
     Dosage: 40 MG, 1X/DAY
  7. OXYCODONE [Concomitant]
     Active Substance: OXYCODONE
     Dosage: 30 MG, EVERY 6 HOURS AS NEEDED
  8. OPANA [Concomitant]
     Active Substance: OXYMORPHONE HYDROCHLORIDE
     Dosage: 40 MG, 2X/DAY
  9. XANAX [Concomitant]
     Active Substance: ALPRAZOLAM
     Dosage: 0.5 MG, 2X/DAY
  10. SIMVASTATIN. [Concomitant]
     Active Substance: SIMVASTATIN
     Indication: BLOOD CHOLESTEROL
     Dosage: 40 MG, 1X/DAY
  11. CARBAMAZEPINE. [Concomitant]
     Active Substance: CARBAMAZEPINE
     Dosage: 400 MG, 1X/DAY IN THE AM

REACTIONS (12)
  - Throat irritation [Recovered/Resolved]
  - Panic attack [Recovered/Resolved]
  - Oropharyngeal pain [Recovered/Resolved]
  - Cardiac discomfort [Recovered/Resolved]
  - Heart rate increased [Unknown]
  - Productive cough [Recovering/Resolving]
  - Dyspepsia [Recovered/Resolved]
  - Anxiety [Recovered/Resolved]
  - Dysphagia [Unknown]
  - Aortic aneurysm [Unknown]
  - Palpitations [Recovered/Resolved]
  - Hyperhidrosis [Unknown]

NARRATIVE: CASE EVENT DATE: 20160610
